FAERS Safety Report 24184036 (Version 1)
Quarter: 2024Q3

REPORT INFORMATION
  Report Type: Spontaneous
  Country: US (occurrence: None)
  Receive Date: 20240806
  Receipt Date: 20240806
  Transmission Date: 20241016
  Serious: No
  Sender: Public
  Company Number: None

PATIENT
  Age: 90 Year
  Sex: Female
  Weight: 59.85 kg

DRUGS (10)
  1. PROLIA [Suspect]
     Active Substance: DENOSUMAB
     Indication: Osteoporosis
     Route: 058
  2. METOPROLOL [Concomitant]
     Active Substance: METOPROLOL
  3. ATORVASTATIN [Concomitant]
     Active Substance: ATORVASTATIN
  4. ESTRADIOL [Concomitant]
     Active Substance: ESTRADIOL
  5. MEDROXYPROGESTERONE [Concomitant]
     Active Substance: MEDROXYPROGESTERONE
  6. ASPIRIN [Concomitant]
     Active Substance: ASPIRIN
  7. ASCORBIC ACID\IRON [Concomitant]
     Active Substance: ASCORBIC ACID\IRON
  8. CALCIUM [Concomitant]
     Active Substance: CALCIUM
  9. VITAMIN D3 [Concomitant]
     Active Substance: CHOLECALCIFEROL
  10. MINERALS\VITAMINS [Concomitant]
     Active Substance: MINERALS\VITAMINS

REACTIONS (6)
  - Cystitis [None]
  - Immune system disorder [None]
  - Cough [None]
  - Nausea [None]
  - Atrial fibrillation [None]
  - Weight decreased [None]
